FAERS Safety Report 15684222 (Version 2)
Quarter: 2018Q4

REPORT INFORMATION
  Report Type: Spontaneous
  Country: TR (occurrence: TR)
  Receive Date: 20181204
  Receipt Date: 20181213
  Transmission Date: 20190205
  Serious: Yes (Other)
  Sender: FDA-Public Use
  Company Number: TR-UCBSA-2018052754

PATIENT
  Sex: Female

DRUGS (1)
  1. CIMZIA [Suspect]
     Active Substance: CERTOLIZUMAB PEGOL
     Indication: ANKYLOSING SPONDYLITIS
     Dosage: LOADING DOSE
     Dates: start: 201712, end: 2018

REACTIONS (1)
  - Polychondritis [Recovered/Resolved]

NARRATIVE: CASE EVENT DATE: 201802
